FAERS Safety Report 17986215 (Version 2)
Quarter: 2020Q4

REPORT INFORMATION
  Report Type: Spontaneous
  Country: US (occurrence: US)
  Receive Date: 20200706
  Receipt Date: 20201110
  Transmission Date: 20210113
  Serious: Yes (Death, Other)
  Sender: FDA-Public Use
  Company Number: US-PFIZER INC-2020256836

PATIENT
  Age: 78 Year
  Sex: Female

DRUGS (2)
  1. RAPAMUNE [Suspect]
     Active Substance: SIROLIMUS
     Dosage: 1 MG, DAILY
     Dates: start: 202001
  2. RAPAMUNE [Suspect]
     Active Substance: SIROLIMUS
     Indication: LIVER TRANSPLANT
     Dosage: UNK
     Dates: end: 202001

REACTIONS (5)
  - Pleural effusion [Unknown]
  - Off label use [Unknown]
  - Product use in unapproved indication [Unknown]
  - Lung carcinoma cell type unspecified stage IV [Fatal]
  - Pulmonary fibrosis [Unknown]

NARRATIVE: CASE EVENT DATE: 202001
